FAERS Safety Report 6430487-4 (Version None)
Quarter: 2009Q4

REPORT INFORMATION
  Report Type: 
  Country: None (occurrence: None)
  Receive Date: 20091104
  Receipt Date: 20091027
  Transmission Date: 20100525
  Serious: Yes (Hospitalization)
  Sender: FDA-Public Use
  Company Number: 2009-04334

PATIENT
  Age: 78 Year
  Sex: Male
  Weight: 83 kg

DRUGS (1)
  1. VELCADE [Suspect]
     Indication: MULTIPLE MYELOMA
     Dosage: INTRAVENOUS
     Route: 042
     Dates: start: 20080908, end: 20081006

REACTIONS (7)
  - FEBRILE NEUTROPENIA [None]
  - PANCYTOPENIA [None]
  - PARESIS [None]
  - PHARYNGEAL ABSCESS [None]
  - PNEUMONIA [None]
  - SOMNOLENCE [None]
  - STREPTOCOCCAL SEPSIS [None]
